FAERS Safety Report 9339214 (Version 1)
Quarter: 2013Q2

REPORT INFORMATION
  Report Type: Spontaneous
  Country: IL (occurrence: IL)
  Receive Date: 20130610
  Receipt Date: 20130610
  Transmission Date: 20140414
  Serious: Yes (Other)
  Sender: FDA-Public Use
  Company Number: IL-PFIZER INC-2013163887

PATIENT
  Age: 58 Year
  Sex: Male

DRUGS (4)
  1. NEURONTIN [Suspect]
     Indication: HYPERTONIC BLADDER
     Dosage: 300 MG, UNK
  2. LIPITOR [Concomitant]
  3. OMNIC [Concomitant]
     Dosage: UNK
  4. ACETYLSALICYLIC ACID [Concomitant]

REACTIONS (6)
  - Off label use [Recovering/Resolving]
  - Dysuria [Recovering/Resolving]
  - Prostatic disorder [Unknown]
  - Pollakiuria [Recovering/Resolving]
  - Burning sensation [Recovering/Resolving]
  - Malaise [Recovering/Resolving]
